FAERS Safety Report 25215234 (Version 2)
Quarter: 2025Q2

REPORT INFORMATION
  Report Type: Spontaneous
  Country: US (occurrence: US)
  Receive Date: 20250418
  Receipt Date: 20250501
  Transmission Date: 20250716
  Serious: Yes (Hospitalization, Other)
  Sender: VERTEX
  Company Number: US-VERTEX PHARMACEUTICALS-2025-005441

PATIENT
  Sex: Female
  Weight: 10 kg

DRUGS (1)
  1. ALYFTREK [Suspect]
     Active Substance: DEUTIVACAFTOR\TEZACAFTOR\VANZACAFTOR
     Indication: Cystic fibrosis
     Dosage: 3 TABS ONCE DAILY;(4 MG VANZA/ 20 MG TEZA/ 50 MG DEUTIVA)
     Route: 048
     Dates: start: 20250327, end: 20250421

REACTIONS (7)
  - Rash pruritic [Recovered/Resolved]
  - Rash papular [Recovered/Resolved]
  - Endoscopy [Unknown]
  - Pancreatitis [Not Recovered/Not Resolved]
  - Abdominal pain upper [Not Recovered/Not Resolved]
  - Viral sinusitis [Unknown]
  - Pyrexia [Not Recovered/Not Resolved]

NARRATIVE: CASE EVENT DATE: 20250101
